FAERS Safety Report 21634455 (Version 5)
Quarter: 2022Q4

REPORT INFORMATION
  Report Type: Report from Study
  Country: CN (occurrence: CN)
  Receive Date: 20221123
  Receipt Date: 20221215
  Transmission Date: 20230113
  Serious: Yes (Hospitalization, Other)
  Sender: FDA-Public Use
  Company Number: CN-BRISTOL-MYERS SQUIBB COMPANY-2022-142051

PATIENT
  Age: 67 Year
  Sex: Male
  Weight: 53 kg

DRUGS (33)
  1. NIVOLUMAB [Suspect]
     Active Substance: NIVOLUMAB
     Indication: Adenocarcinoma gastric
     Route: 041
     Dates: start: 20221025, end: 20221025
  2. OXALIPLATIN [Suspect]
     Active Substance: OXALIPLATIN
     Indication: Adenocarcinoma gastric
     Route: 041
     Dates: start: 20221025, end: 20221025
  3. CAPECITABINE [Suspect]
     Active Substance: CAPECITABINE
     Indication: Adenocarcinoma gastric
     Dosage: 1.5 G (3 TABLETS IN THE MORNING AND 3 IN THE EVENING), BID DAYS 1 TO 14 OF EACH 3-WEEK CYCLE
     Route: 048
     Dates: start: 20221025, end: 20221030
  4. TST-001 [Suspect]
     Active Substance: TST-001
     Indication: Adenocarcinoma gastric
     Route: 041
     Dates: start: 20221025, end: 20221025
  5. LANSOPRAZOLE [Concomitant]
     Active Substance: LANSOPRAZOLE
     Indication: Product used for unknown indication
     Dates: start: 20221025, end: 20221028
  6. ESOMEPRAZOLE [Concomitant]
     Active Substance: ESOMEPRAZOLE
     Indication: Product used for unknown indication
     Dates: start: 20221028, end: 20221103
  7. ALUMINUM PHOSPHATE [Concomitant]
     Active Substance: ALUMINUM PHOSPHATE
     Indication: Product used for unknown indication
     Dates: start: 20221028, end: 20221103
  8. CIMETIDINE [Concomitant]
     Active Substance: CIMETIDINE
     Indication: Product used for unknown indication
     Dates: start: 20221103, end: 20221116
  9. ONDANSETRON HYDROCHLORIDE [Concomitant]
     Active Substance: ONDANSETRON HYDROCHLORIDE
     Indication: Product used for unknown indication
     Dates: start: 20221025, end: 20221028
  10. ONDANSETRON HYDROCHLORIDE [Concomitant]
     Active Substance: ONDANSETRON HYDROCHLORIDE
     Dates: start: 20221101, end: 20221104
  11. METOCLOPRAMIDE HYDROCHLORIDE [Concomitant]
     Active Substance: METOCLOPRAMIDE HYDROCHLORIDE
     Indication: Product used for unknown indication
     Dates: start: 20221025, end: 20221028
  12. METOCLOPRAMIDE HYDROCHLORIDE [Concomitant]
     Active Substance: METOCLOPRAMIDE HYDROCHLORIDE
     Dates: start: 20221103, end: 20221107
  13. DEXAMETHASONE SODIUM PHOSPHATE [Concomitant]
     Active Substance: DEXAMETHASONE SODIUM PHOSPHATE
     Indication: Product used for unknown indication
     Dates: start: 20221025, end: 20221028
  14. DEXAMETHASONE SODIUM PHOSPHATE [Concomitant]
     Active Substance: DEXAMETHASONE SODIUM PHOSPHATE
     Dates: start: 20221104, end: 20221104
  15. APREPITANT [Concomitant]
     Active Substance: APREPITANT
     Indication: Product used for unknown indication
     Dates: start: 20221025, end: 20221027
  16. GRANISETRON HYDROCHLORIDE [Concomitant]
     Active Substance: GRANISETRON HYDROCHLORIDE
     Indication: Product used for unknown indication
     Dates: start: 20221028, end: 20221103
  17. SODIUM CHLORIDE [Concomitant]
     Active Substance: SODIUM CHLORIDE
     Indication: Product used for unknown indication
     Dates: start: 20221101, end: 20221104
  18. POTASSIUM CHLORIDE [Concomitant]
     Active Substance: POTASSIUM CHLORIDE
     Indication: Product used for unknown indication
     Dates: start: 20221101, end: 20221104
  19. POTASSIUM CHLORIDE [Concomitant]
     Active Substance: POTASSIUM CHLORIDE
     Dates: start: 20221108, end: 20221111
  20. POTASSIUM CHLORIDE [Concomitant]
     Active Substance: POTASSIUM CHLORIDE
     Dates: start: 20221108, end: 20221111
  21. DEXTROSE\SODIUM CHLORIDE [Concomitant]
     Active Substance: DEXTROSE\SODIUM CHLORIDE
     Indication: Product used for unknown indication
     Dates: start: 20221101, end: 20221104
  22. VITAMIN B6 [Concomitant]
     Active Substance: PYRIDOXINE HYDROCHLORIDE
     Indication: Product used for unknown indication
     Dates: start: 20221101, end: 20221104
  23. VITAMIN C [Concomitant]
     Active Substance: ASCORBIC ACID
     Indication: Product used for unknown indication
     Dates: start: 20221101, end: 20221104
  24. VITAMIN C [Concomitant]
     Active Substance: ASCORBIC ACID
     Dates: start: 20221109, end: 20221116
  25. AMINO ACIDS, SOURCE UNSPECIFIED [Concomitant]
     Active Substance: AMINO ACIDS, SOURCE UNSPECIFIED
     Indication: Product used for unknown indication
     Dates: start: 20221101, end: 20221107
  26. GLUTATHIONE [Concomitant]
     Active Substance: GLUTATHIONE
     Indication: Product used for unknown indication
     Dates: start: 20221104, end: 20221111
  27. HERBALS\DIAMMONIUM GLYCYRRHIZINATE [Concomitant]
     Active Substance: HERBALS\DIAMMONIUM GLYCYRRHIZINATE
     Indication: Product used for unknown indication
     Dates: start: 20221104, end: 20221111
  28. HERBALS\DIAMMONIUM GLYCYRRHIZINATE [Concomitant]
     Active Substance: HERBALS\DIAMMONIUM GLYCYRRHIZINATE
     Indication: Product used for unknown indication
     Dates: start: 20221104, end: 20221111
  29. CEFUROXIME SODIUM [Concomitant]
     Active Substance: CEFUROXIME SODIUM
     Indication: Product used for unknown indication
     Dates: start: 20221104, end: 20221107
  30. LYSINE ACETYLSALICYLATE [Concomitant]
     Active Substance: ASPIRIN DL-LYSINE
     Indication: Product used for unknown indication
     Dates: start: 20221105, end: 20221106
  31. PENICILLIN G [Concomitant]
     Active Substance: PENICILLIN G
     Indication: Product used for unknown indication
     Dates: start: 20221107, end: 20221108
  32. PENICILLIN G [Concomitant]
     Active Substance: PENICILLIN G
     Dates: start: 20221109, end: 20221116
  33. ANISODAMINE [Concomitant]
     Active Substance: ANISODAMINE
     Indication: Product used for unknown indication
     Dates: start: 20221105, end: 20221107

REACTIONS (1)
  - Intestinal obstruction [Not Recovered/Not Resolved]

NARRATIVE: CASE EVENT DATE: 20221109
